FAERS Safety Report 20182449 (Version 1)
Quarter: 2021Q4

REPORT INFORMATION
  Report Type: Spontaneous
  Country: AR (occurrence: AR)
  Receive Date: 20211214
  Receipt Date: 20211214
  Transmission Date: 20220303
  Serious: No
  Sender: FDA-Public Use
  Company Number: AR-PFIZER INC-2021851220

PATIENT
  Age: 11 Year
  Sex: Female

DRUGS (1)
  1. GENOTROPIN [Suspect]
     Active Substance: SOMATROPIN
     Indication: Hypopituitarism
     Dosage: 1 TO 1.4 MG, 6 TIMES PER WEEK
     Dates: start: 20190926

REACTIONS (3)
  - Poor quality device used [Unknown]
  - Device issue [Unknown]
  - Device leakage [Unknown]
